FAERS Safety Report 18752398 (Version 2)
Quarter: 2021Q1

REPORT INFORMATION
  Report Type: Spontaneous
  Country: US (occurrence: US)
  Receive Date: 20210118
  Receipt Date: 20210125
  Transmission Date: 20210419
  Serious: Yes (Life-Threatening)
  Sender: FDA-Public Use
  Company Number: US-PFIZER INC-2021020779

PATIENT
  Age: 66 Year
  Sex: Male

DRUGS (2)
  1. DROPERIDOL. [Suspect]
     Active Substance: DROPERIDOL
     Dosage: 1.25 MG
  2. PHENYTOIN. [Concomitant]
     Active Substance: PHENYTOIN
     Dosage: UNK

REACTIONS (2)
  - Hypotension [Unknown]
  - Ventricular tachycardia [Unknown]
